FAERS Safety Report 13491459 (Version 1)
Quarter: 2017Q2

REPORT INFORMATION
  Report Type: Report from Study
  Country: US (occurrence: US)
  Receive Date: 20170427
  Receipt Date: 20170427
  Transmission Date: 20170830
  Serious: Yes (Hospitalization, Other)
  Sender: FDA-Public Use
  Company Number: PHHO2010US021855

PATIENT
  Age: 50 Year
  Sex: Female
  Weight: 86.6 kg

DRUGS (13)
  1. INSULIN [Concomitant]
     Active Substance: INSULIN NOS
     Indication: HYPERGLYCAEMIA
     Dosage: 5 U, PRN
     Route: 058
     Dates: start: 20100630, end: 20100630
  2. IPRATROPIUM BROMIDE. [Concomitant]
     Active Substance: IPRATROPIUM BROMIDE
     Indication: DYSPNOEA
     Dosage: 1 DF, ONCE/SINGLE
     Route: 055
     Dates: start: 20100701, end: 20100701
  3. EPINEPHRINE. [Concomitant]
     Active Substance: EPINEPHRINE
     Indication: DYSPNOEA
     Dosage: 0.3 MG, ONCE/SINGLE
     Route: 030
     Dates: start: 20100702, end: 20100702
  4. ALBUTEROL SULFATE. [Concomitant]
     Active Substance: ALBUTEROL SULFATE
     Indication: DYSPNOEA
     Dosage: 2 DF, PRN
     Route: 055
     Dates: start: 20100701, end: 20100703
  5. PAZOPANIB [Suspect]
     Active Substance: PAZOPANIB
     Indication: OVARIAN CANCER
     Dosage: 800 MG, QD
     Route: 048
     Dates: start: 20100615, end: 20100627
  6. PAZOPANIB [Suspect]
     Active Substance: PAZOPANIB
     Indication: FALLOPIAN TUBE CANCER
  7. PAZOPANIB [Suspect]
     Active Substance: PAZOPANIB
     Indication: MALIGNANT PERITONEAL NEOPLASM
  8. IPRATROPIUM BROMIDE. [Concomitant]
     Active Substance: IPRATROPIUM BROMIDE
     Dosage: 2 DF, PRN
     Route: 055
     Dates: start: 20100702, end: 20100704
  9. FLUTICASONE PROPIONATE. [Concomitant]
     Active Substance: FLUTICASONE PROPIONATE
     Indication: DYSPNOEA
     Dosage: 2 DF, PRN
     Route: 045
     Dates: start: 20100702, end: 20100704
  10. HEPARIN SODIUM. [Concomitant]
     Active Substance: HEPARIN SODIUM
     Indication: THROMBOSIS PROPHYLAXIS
     Dosage: 5000 U, PRN
     Route: 058
     Dates: start: 20100630, end: 20100701
  11. CYCLOBENZAPRINE HCL [Concomitant]
     Active Substance: CYCLOBENZAPRINE HYDROCHLORIDE
     Indication: MUSCLE SPASMS
     Dosage: 10 MG, ONCE/SINGLE
     Route: 048
     Dates: start: 20100703, end: 20100703
  12. FAMOTIDINE. [Concomitant]
     Active Substance: FAMOTIDINE
     Indication: NAUSEA
     Dosage: 20 MG, PRN
     Route: 042
     Dates: start: 20100630, end: 20100704
  13. OXYCODONE [Concomitant]
     Active Substance: OXYCODONE
     Indication: PAIN
     Dosage: 2 DF, ONCE/SINGLE
     Route: 048
     Dates: start: 20100702, end: 20100702

REACTIONS (2)
  - Pyrexia [Recovered/Resolved]
  - Aspartate aminotransferase increased [Recovered/Resolved]

NARRATIVE: CASE EVENT DATE: 20100628
